FAERS Safety Report 6070199-2 (Version None)
Quarter: 2009Q1

REPORT INFORMATION
  Report Type: 
  Country: None (occurrence: None)
  Receive Date: 20090209
  Receipt Date: 20090130
  Transmission Date: 20090719
  Serious: Yes (Hospitalization)
  Sender: FDA-Public Use
  Company Number: FR-PFIZER INC-2009164361

PATIENT

DRUGS (7)
  1. TAHOR [Suspect]
     Indication: HYPERCHOLESTEROLAEMIA
     Dosage: 1 DF, 1X/DAY
     Route: 048
     Dates: start: 20040101
  2. CANDESARTAN CILEXETIL [Suspect]
     Indication: HYPERTENSION
     Dosage: 1 DF, 1X/DAY
     Route: 048
  3. METRONIDAZOLE/SPIRAMYCIN [Suspect]
     Indication: ANTIBIOTIC PROPHYLAXIS
     Route: 048
     Dates: start: 20070101, end: 20070701
  4. CLOPIDOGREL [Suspect]
     Indication: PLATELET AGGREGATION INHIBITION
     Dosage: 1 DF, 1X/DAY
     Route: 048
     Dates: start: 20040101
  5. AMOXICILLIN AND CLAVULANATE POTASSIUM [Suspect]
     Indication: LUNG DISORDER
     Route: 048
     Dates: start: 20080815, end: 20080905
  6. IDARUBICIN [Concomitant]
  7. CYTARABINE [Concomitant]

REACTIONS (2)
  - ACUTE MYELOID LEUKAEMIA [None]
  - PANCYTOPENIA [None]
